FAERS Safety Report 25179434 (Version 2)
Quarter: 2025Q3

REPORT INFORMATION
  Report Type: Spontaneous
  Country: KR (occurrence: KR)
  Receive Date: 20250409
  Receipt Date: 20250818
  Transmission Date: 20251020
  Serious: Yes (Hospitalization)
  Sender: TAKEDA
  Company Number: KR-TAKEDA-2025TUS035009

PATIENT
  Age: 73 Year
  Sex: Male
  Weight: 60 kg

DRUGS (3)
  1. VEDOLIZUMAB [Suspect]
     Active Substance: VEDOLIZUMAB
     Indication: Crohn^s disease
  2. Flasinyl [Concomitant]
     Indication: Abdominal pain
     Dosage: UNK UNK, TID
     Dates: start: 20220309
  3. Ramnos [Concomitant]
     Indication: Abdominal pain
     Dosage: 250 MILLIGRAM, TID
     Dates: start: 20220309

REACTIONS (1)
  - Abdominal pain [Recovered/Resolved]

NARRATIVE: CASE EVENT DATE: 20220307
